FAERS Safety Report 21639441 (Version 1)
Quarter: 2022Q4

REPORT INFORMATION
  Report Type: Report from Study
  Country: US (occurrence: US)
  Receive Date: 20221124
  Receipt Date: 20221124
  Transmission Date: 20230113
  Serious: Yes (Other)
  Sender: FDA-Public Use
  Company Number: US-ABBVIE-22K-163-4533341-00

PATIENT
  Sex: Female
  Weight: 76.657 kg

DRUGS (9)
  1. HUMIRA [Suspect]
     Active Substance: ADALIMUMAB
     Indication: Crohn^s disease
     Dosage: FORM STRENGTH: 40 MG
     Route: 058
     Dates: start: 20190710
  2. SYNTHROID [Concomitant]
     Active Substance: LEVOTHYROXINE SODIUM
     Indication: Product used for unknown indication
     Dosage: TAKE 1 TABLET BY MOUTH DAILY/25 MCG TABLET
  3. ASCORBIC ACID [Concomitant]
     Active Substance: ASCORBIC ACID
     Indication: Product used for unknown indication
     Dosage: TAKE 500 MG BY MOUTH IN THE MORNING./500 MG TABLET
  4. GLUCOPHAGE [Concomitant]
     Active Substance: METFORMIN HYDROCHLORIDE
     Indication: Product used for unknown indication
     Dosage: TAKE 1 BY MOUTH DAILY(WITH BREAKFAST)/500 MG TABLET
  5. ATARAX [Concomitant]
     Active Substance: HYDROXYZINE HYDROCHLORIDE
     Indication: Product used for unknown indication
     Dosage: TAKE 1 TABLET BY MOUTH 3 TIMES DAILY AS NEEDED FOR ITCHING/25 MG TABLET
  6. INDERAL LA [Concomitant]
     Active Substance: PROPRANOLOL HYDROCHLORIDE
     Indication: Product used for unknown indication
     Dosage: TAKE 1 CAPSULE BY MOUTH DAILY/120 MG EXTENDED RELEASE CAPSULE
  7. PRILOSEC [Concomitant]
     Active Substance: OMEPRAZOLE MAGNESIUM
     Indication: Product used for unknown indication
     Dosage: 40 MG DELAYED RELEASE CAPSULE/TAKE 1 CAPSULE BY MOUTH ONCE DAILY
  8. CHOLECALCIFEROL [Concomitant]
     Active Substance: CHOLECALCIFEROL
     Indication: Product used for unknown indication
     Dosage: TAKE 1,000 UNITS BY MOUTH DAILY/25 MCG (1000 UT) TABS TABLET
  9. MYRBETRIQ [Concomitant]
     Active Substance: MIRABEGRON
     Indication: Product used for unknown indication
     Dosage: 25 MG TB24/TAKE 1. TABLET BY MOUTH DAILY

REACTIONS (11)
  - Cataract [Unknown]
  - Crohn^s disease [Not Recovered/Not Resolved]
  - Wrong technique in product usage process [Unknown]
  - Hysterectomy [Unknown]
  - Skin cancer [Unknown]
  - Device breakage [Unknown]
  - Tonsillectomy [Unknown]
  - Adenoidectomy [Unknown]
  - Diverticulum [Unknown]
  - Drug ineffective [Not Recovered/Not Resolved]
  - Ileal ulcer [Unknown]
